FAERS Safety Report 4741522-3 (Version None)
Quarter: 2005Q3

REPORT INFORMATION
  Report Type: 
  Country: None (occurrence: None)
  Receive Date: 20050808
  Receipt Date: 20050513
  Transmission Date: 20060218
  Serious: No
  Sender: FDA-Public Use
  Company Number: 2005FR-00196

PATIENT
  Age: 65 Year
  Sex: Female

DRUGS (5)
  1. RANITIDINE [Suspect]
     Indication: GASTRITIS
     Dosage: 150 MG
     Route: 048
     Dates: start: 20050225, end: 20050321
  2. GAVISCON [Concomitant]
  3. CO-PROXAMOL [Concomitant]
  4. INDOMETHACIN [Concomitant]
  5. CO-DYDRAMOL [Concomitant]

REACTIONS (1)
  - BRONCHOSPASM [None]
